FAERS Safety Report 7127731-7 (Version None)
Quarter: 2010Q4

REPORT INFORMATION
  Report Type: 
  Country: None (occurrence: None)
  Receive Date: 20101130
  Receipt Date: 20101117
  Transmission Date: 20110411
  Serious: No
  Sender: FDA-Public Use
  Company Number: US-BIOGENIDEC-2010BI040523

PATIENT
  Age: 40 Year
  Sex: Female

DRUGS (1)
  1. TYSABRI [Suspect]
     Indication: MULTIPLE SCLEROSIS
     Route: 042
     Dates: start: 20100625, end: 20100917

REACTIONS (8)
  - ABASIA [None]
  - BLOOD PRESSURE INCREASED [None]
  - DRUG SPECIFIC ANTIBODY PRESENT [None]
  - FLUID RETENTION [None]
  - HYPERSENSITIVITY [None]
  - INFUSION RELATED REACTION [None]
  - MOBILITY DECREASED [None]
  - WEIGHT INCREASED [None]
